FAERS Safety Report 9024351 (Version 1)
Quarter: 2013Q1

REPORT INFORMATION
  Report Type: Report from Study
  Country: JP (occurrence: JP)
  Receive Date: 20130121
  Receipt Date: 20130121
  Transmission Date: 20140127
  Serious: Yes (Death, Other)
  Sender: FDA-Public Use
  Company Number: PHHY2012JP108962

PATIENT
  Age: 72 None
  Sex: Male

DRUGS (2)
  1. AFINITOR [Suspect]
     Indication: RENAL CELL CARCINOMA
     Dosage: 10 MG, QD
     Route: 048
     Dates: start: 20110318, end: 20110617
  2. SORAFENIB TOSILATE [Concomitant]
     Indication: RENAL CELL CARCINOMA
     Dosage: 800 MG
     Route: 048
     Dates: start: 20100923, end: 20110317

REACTIONS (4)
  - Malignant neoplasm progression [Fatal]
  - Blood alkaline phosphatase increased [Unknown]
  - C-reactive protein increased [Unknown]
  - Haemoglobin decreased [Unknown]
